FAERS Safety Report 18857784 (Version 1)
Quarter: 2021Q1

REPORT INFORMATION
  Report Type: Spontaneous
  Country: US (occurrence: US)
  Receive Date: 20210208
  Receipt Date: 20210208
  Transmission Date: 20210420
  Serious: No
  Sender: FDA-Public Use
  Company Number: US-JNJFOC-20210144272

PATIENT
  Age: 30 Year
  Sex: Female
  Weight: 130.89 kg

DRUGS (1)
  1. PEPCID [Suspect]
     Active Substance: FAMOTIDINE
     Indication: DYSPEPSIA
     Dosage: 2 TABLETS TWICAE DAILY / PRODUCT START DATE: 1 YEAR AGO /DATE OF DRUG LAST ADMIN: 22?JAN?2021
     Route: 048

REACTIONS (2)
  - Muscle spasms [Recovering/Resolving]
  - Overdose [Unknown]

NARRATIVE: CASE EVENT DATE: 20210115
